FAERS Safety Report 11510456 (Version 2)
Quarter: 2015Q4

REPORT INFORMATION
  Report Type: Report from Study
  Country: US (occurrence: US)
  Receive Date: 20150915
  Receipt Date: 20151106
  Transmission Date: 20160304
  Serious: Yes (Hospitalization)
  Sender: FDA-Public Use
  Company Number: US-GLAXOSMITHKLINE-US2015GSK129981

PATIENT
  Age: 28 Year
  Sex: Female
  Weight: 50 kg

DRUGS (8)
  1. NORCO [Suspect]
     Active Substance: ACETAMINOPHEN\HYDROCODONE BITARTRATE
     Indication: ABDOMINAL PAIN
     Dosage: UNK, PRN
     Route: 048
     Dates: start: 20150127, end: 20150128
  2. EFFEXOR [Concomitant]
     Active Substance: VENLAFAXINE HYDROCHLORIDE
     Indication: GENERALISED ANXIETY DISORDER
     Dosage: 75 MG, QD
     Route: 048
     Dates: start: 201410
  3. TORADOL [Suspect]
     Active Substance: KETOROLAC TROMETHAMINE
  4. TORADOL [Concomitant]
     Active Substance: KETOROLAC TROMETHAMINE
     Indication: ABDOMINAL PAIN
     Dosage: 30 MG, SINGLE
     Route: 042
     Dates: start: 20150126, end: 20150127
  5. ONDANSETRON HYDROCHLORIDE. [Suspect]
     Active Substance: ONDANSETRON HYDROCHLORIDE
     Indication: ABDOMINAL PAIN
     Dosage: 4 MG, SINGLE
     Route: 042
     Dates: start: 20150126, end: 20150127
  6. TRAZODONE [Concomitant]
     Active Substance: TRAZODONE HYDROCHLORIDE
     Indication: SLEEP DISORDER
     Dosage: 50 MG, PRN
     Route: 048
     Dates: start: 201410
  7. BLINDED TRIAL MEDICATION [Concomitant]
     Active Substance: INVESTIGATIONAL PRODUCT
     Indication: GENERALISED ANXIETY DISORDER
     Dosage: UNK, BID
     Route: 048
     Dates: start: 20150129, end: 20150202
  8. DILAUDID [Suspect]
     Active Substance: HYDROMORPHONE HYDROCHLORIDE
     Indication: ABDOMINAL PAIN
     Dosage: 1 MG, SINGLE
     Route: 042
     Dates: start: 20150126, end: 20150127

REACTIONS (2)
  - Vertigo positional [Recovering/Resolving]
  - Dizziness [Recovering/Resolving]

NARRATIVE: CASE EVENT DATE: 20150204
